FAERS Safety Report 5303637-0 (Version None)
Quarter: 2007Q2

REPORT INFORMATION
  Report Type: 
  Country: None (occurrence: None)
  Receive Date: 20070420
  Receipt Date: 20070413
  Transmission Date: 20071010
  Serious: Yes (Hospitalization, Disabling)
  Sender: FDA-Public Use
  Company Number: US-SHR-US-2007-009989

PATIENT
  Age: 35 Year
  Sex: Male
  Weight: 73 kg

DRUGS (4)
  1. MAGNEVIST [Suspect]
     Dosage: UNK, 1 DOSE
     Route: 042
     Dates: start: 20031216, end: 20031216
  2. MAGNEVIST [Suspect]
     Route: 042
     Dates: start: 20040115, end: 20040115
  3. MAGNEVIST [Suspect]
     Route: 042
     Dates: start: 20040225, end: 20040225
  4. MAGNEVIST [Suspect]
     Dosage: 17 ML, 1 DOSE
     Route: 042
     Dates: start: 20040706, end: 20040706

REACTIONS (5)
  - DYSKINESIA [None]
  - DYSPHAGIA [None]
  - NEPHROGENIC FIBROSING DERMOPATHY [None]
  - SPEECH DISORDER [None]
  - TONGUE DISORDER [None]
